FAERS Safety Report 5509448-5 (Version None)
Quarter: 2007Q4

REPORT INFORMATION
  Report Type: 
  Country: None (occurrence: None)
  Receive Date: 20071107
  Receipt Date: 20071026
  Transmission Date: 20080405
  Serious: Yes (Other)
  Sender: FDA-Public Use
  Company Number: FR-PFIZER INC-2007067279

PATIENT
  Sex: Male
  Weight: 75 kg

DRUGS (12)
  1. LYRICA [Suspect]
     Indication: EPILEPSY
     Route: 048
  2. DEPAKINE CHRONO [Concomitant]
  3. CARBAMAZEPINE [Concomitant]
     Route: 048
  4. ALL OTHER THERAPEUTIC PRODUCTS [Concomitant]
  5. VALPROIC ACID [Concomitant]
     Route: 048
  6. OLANZAPINE [Concomitant]
     Route: 048
  7. FENOFIBRATE [Concomitant]
     Route: 048
  8. HYDROXYZINE [Concomitant]
     Route: 048
  9. MEPROBAMATE [Concomitant]
     Route: 048
  10. ACEPROMAZINE [Concomitant]
     Route: 048
  11. CLONAZEPAM [Concomitant]
  12. ACEPROMETAZINE [Concomitant]
     Route: 048
     Dates: start: 20030101

REACTIONS (5)
  - ANTICONVULSANT DRUG LEVEL DECREASED [None]
  - DRUG ADMINISTRATION ERROR [None]
  - DRUG INEFFECTIVE [None]
  - EPILEPSY [None]
  - GASTROENTERITIS [None]
